FAERS Safety Report 6804974-0 (Version None)
Quarter: 2010Q2

REPORT INFORMATION
  Report Type: 
  Country: None (occurrence: None)
  Receive Date: 20100628
  Receipt Date: 20070712
  Transmission Date: 20101027
  Serious: No
  Sender: FDA-Public Use
  Company Number: US-PFIZER INC-2007058418

PATIENT
  Sex: Male

DRUGS (1)
  1. XALATAN [Suspect]
     Indication: ABNORMAL SENSATION IN EYE
     Dates: start: 20070101

REACTIONS (3)
  - EYE IRRITATION [None]
  - EYE PAIN [None]
  - INCORRECT DOSE ADMINISTERED [None]
